FAERS Safety Report 9500717 (Version 2)
Quarter: 2013Q3

REPORT INFORMATION
  Report Type: Report from Study
  Country: FR (occurrence: FR)
  Receive Date: 20130905
  Receipt Date: 20130905
  Transmission Date: 20140515
  Serious: Yes (Hospitalization)
  Sender: FDA-Public Use
  Company Number: FR-009507513-1201FRA00047

PATIENT
  Sex: Male
  Weight: 73 kg

DRUGS (13)
  1. SITAGLIPTIN PHOSPHATE [Suspect]
     Indication: TYPE 2 DIABETES MELLITUS
     Dosage: 100 MG, QD
     Dates: start: 20100903, end: 20111017
  2. SITAGLIPTIN PHOSPHATE [Suspect]
     Dosage: 100 MG, QD
     Dates: start: 20111017, end: 20130827
  3. METFORMIN [Concomitant]
     Indication: TYPE 2 DIABETES MELLITUS
     Dosage: 2 DF, QD
     Route: 048
  4. METFORMIN [Concomitant]
     Dosage: 3 DF, QD
     Route: 048
     Dates: end: 20110220
  5. METFORMIN [Concomitant]
     Dosage: 2 DF, QD
     Route: 048
     Dates: start: 20110220
  6. LANTUS [Concomitant]
     Dosage: 6 IU, QD
     Dates: end: 20110907
  7. LANTUS [Concomitant]
     Dosage: 8 IU, QD
     Dates: start: 20111117
  8. HEMI-DAONIL [Concomitant]
     Dosage: 1 MG, QD
     Route: 048
     Dates: start: 20110220, end: 20110907
  9. DAONIL [Concomitant]
     Dosage: 2 DF, QD
     Route: 048
     Dates: start: 20110220, end: 20111017
  10. APIDRA [Concomitant]
     Dosage: 18 IU, QD
     Dates: start: 20111017
  11. KARDEGIC [Concomitant]
     Indication: CARDIOVASCULAR EVENT PROPHYLAXIS
     Dosage: 75 MG, QD
  12. CRESTOR [Concomitant]
     Indication: HYPERCHOLESTEROLAEMIA
     Dosage: 5 MG, QD
  13. ZOXAN (DOXAZOSIN MESYLATE) [Concomitant]
     Indication: PROSTATIC ADENOMA
     Dosage: 8 MG, UNK

REACTIONS (3)
  - Spinal laminectomy [Recovering/Resolving]
  - Hypoglycaemia [Recovered/Resolved]
  - Drug ineffective [Recovered/Resolved]
